FAERS Safety Report 8576297 (Version 7)
Quarter: 2012Q4

REPORT INFORMATION
  Report Type: 
  Country: US (occurrence: US)
  Receive Date: 20120523
  Receipt Date: 20121106
  Transmission Date: 20130627
  Serious: Yes (Hospitalization, Other)
  Sender: FDA-Public Use
  Company Number: US-009507513-1205USA03418

PATIENT

DRUGS (11)
  1. FOSAMAX [Suspect]
     Indication: OSTEOPOROSIS
     Dosage: 70 mg, qw
     Route: 048
     Dates: start: 19990101
  2. CALTRATE WITH VITAMIN D [Concomitant]
     Dosage: 600mg/400 mg, bid
     Dates: start: 1990
  3. ASCORBIC ACID [Concomitant]
     Dosage: 500 mg, qd
     Dates: start: 1990
  4. ASCORBIC ACID [Concomitant]
     Dosage: UNK, bid
  5. FOLIC ACID [Concomitant]
     Dosage: 800 Microgram, qd
     Dates: start: 1990
  6. CORTICOSTEROIDS (UNSPECIFIED) [Concomitant]
     Dosage: UNK
     Dates: start: 1992
  7. FOSAMAX [Suspect]
     Indication: OSTEOPOROSIS
     Dosage: 70 mg, qw
     Route: 048
     Dates: start: 20100429, end: 20110128
  8. METHOTREXATE [Concomitant]
     Indication: RHEUMATOID ARTHRITIS
     Dosage: 10 mg, qw
     Route: 048
     Dates: start: 1997
  9. SYNTHROID [Concomitant]
     Dosage: 75 mcg, qd
     Dates: start: 1969
  10. PLAQUENIL [Concomitant]
     Indication: RHEUMATOID ARTHRITIS
  11. FOSAMAX [Suspect]
     Dosage: 70 mg, unk
     Route: 048
     Dates: start: 20090913, end: 20101101

REACTIONS (39)
  - Femur fracture [Unknown]
  - Hip fracture [Unknown]
  - Systemic lupus erythematosus [Unknown]
  - Intramedullary rod insertion [Unknown]
  - Tendon operation [Unknown]
  - Femur fracture [Unknown]
  - Femur fracture [Unknown]
  - Gait disturbance [Unknown]
  - Low turnover osteopathy [Unknown]
  - Hypertension [Unknown]
  - Ileus [Unknown]
  - Palpitations [Unknown]
  - Left atrial dilatation [Unknown]
  - Mitral valve incompetence [Unknown]
  - Tricuspid valve incompetence [Unknown]
  - Aortic valve incompetence [Unknown]
  - Osteoarthritis [Unknown]
  - Spinal osteoarthritis [Unknown]
  - Sinus disorder [Unknown]
  - Osteoarthritis [Unknown]
  - Hyperthyroidism [Unknown]
  - Intervertebral disc degeneration [Unknown]
  - Helicobacter gastritis [Unknown]
  - Foot fracture [Unknown]
  - Intervertebral disc protrusion [Unknown]
  - Spondylolisthesis [Unknown]
  - Spinal osteoarthritis [Unknown]
  - Intervertebral disc protrusion [Unknown]
  - Ligament disorder [Unknown]
  - Synovial cyst [Unknown]
  - Radiculopathy [Unknown]
  - Vertebral foraminal stenosis [Unknown]
  - Fall [Unknown]
  - Pyrexia [Unknown]
  - Nausea [Unknown]
  - Gastrooesophageal reflux disease [Unknown]
  - Back pain [Not Recovered/Not Resolved]
  - Paraesthesia [Unknown]
  - Pain in jaw [Unknown]
